FAERS Safety Report 13653085 (Version 1)
Quarter: 2017Q2

REPORT INFORMATION
  Report Type: Spontaneous
  Country: US (occurrence: US)
  Receive Date: 20170614
  Receipt Date: 20170614
  Transmission Date: 20170830
  Serious: No
  Sender: FDA-Public Use
  Company Number: US-ROCHE-1061427

PATIENT
  Age: 63 Year
  Sex: Male

DRUGS (1)
  1. XELODA [Suspect]
     Active Substance: CAPECITABINE
     Indication: SALIVARY GLAND CANCER
     Dosage: 3 TABLETS TWICE DAILY FOR 14 DAYS.
     Route: 048
     Dates: start: 20110715, end: 201202

REACTIONS (2)
  - Infection [Unknown]
  - Skin ulcer [Recovered/Resolved]

NARRATIVE: CASE EVENT DATE: 20120227
